FAERS Safety Report 4788065-9 (Version None)
Quarter: 2005Q4

REPORT INFORMATION
  Report Type: 
  Country: None (occurrence: None)
  Receive Date: 20051003
  Receipt Date: 20050921
  Transmission Date: 20060501
  Serious: Yes (Other)
  Sender: FDA-Public Use
  Company Number: GXKR2005EC01707

PATIENT
  Age: 63 Year
  Sex: Female
  Weight: 50 kg

DRUGS (3)
  1. FLUCESS (NGX) (FLUCONAZOLE) CAPSULE [Suspect]
     Indication: ONYCHOMYCOSIS
     Dosage: 300 MG, QW, ORAL
     Route: 048
     Dates: start: 20050523, end: 20050712
  2. GLYBURIDE [Concomitant]
  3. METFORMIN (METFORMIN) [Concomitant]

REACTIONS (1)
  - NAIL DISCOLOURATION [None]
